FAERS Safety Report 4335827-8 (Version None)
Quarter: 2004Q2

REPORT INFORMATION
  Report Type: 
  Country: None (occurrence: None)
  Receive Date: 20040405
  Receipt Date: 20040315
  Transmission Date: 20050107
  Serious: Yes (Life-Threatening, Hospitalization)
  Sender: FDA-Public Use
  Company Number: OMPQ-NO-0403S-0202

PATIENT
  Age: 83 Year
  Sex: Male
  Weight: 62 kg

DRUGS (1)
  1. OMNIPAQUE 180 [Suspect]
     Indication: GASTRIC CANCER
     Dosage: SINGLE DOSE, I.V.
     Route: 042
     Dates: start: 20040308, end: 20040308

REACTIONS (8)
  - BLOOD PRESSURE IMMEASURABLE [None]
  - CONFUSIONAL STATE [None]
  - DELIRIUM [None]
  - EYE ROLLING [None]
  - LOSS OF CONSCIOUSNESS [None]
  - PULSE ABSENT [None]
  - RESPIRATORY ARREST [None]
  - SHOCK [None]
